FAERS Safety Report 4567766-1 (Version None)
Quarter: 2005Q1

REPORT INFORMATION
  Report Type: 
  Country: None (occurrence: None)
  Receive Date: 20050202
  Receipt Date: 20050119
  Transmission Date: 20050727
  Serious: Yes (Other)
  Sender: FDA-Public Use
  Company Number: 200510279JP

PATIENT
  Sex: 0

DRUGS (1)
  1. TAXOTERE [Suspect]
     Route: 041

REACTIONS (1)
  - SCLERODERMA [None]
